FAERS Safety Report 6130843-8 (Version None)
Quarter: 2009Q1

REPORT INFORMATION
  Report Type: 
  Country: None (occurrence: None)
  Receive Date: 20090319
  Receipt Date: 20090310
  Transmission Date: 20090719
  Serious: Yes (Hospitalization)
  Sender: FDA-Public Use
  Company Number: THYM-1000943

PATIENT
  Age: 69 Year
  Sex: Male
  Weight: 83.3 kg

DRUGS (2)
  1. THYMOGLOBULIN [Suspect]
     Indication: TRANSPLANT REJECTION
     Dosage: 125 MG, QD, INTRAVENOUS
     Route: 042
     Dates: start: 20090116, end: 20090117
  2. CORTICOSTEROIDS [Concomitant]

REACTIONS (2)
  - FEBRILE NEUTROPENIA [None]
  - PULMONARY OEDEMA [None]
